FAERS Safety Report 4618757-3 (Version None)
Quarter: 2005Q1

REPORT INFORMATION
  Report Type: 
  Country: None (occurrence: None)
  Receive Date: 20050323
  Receipt Date: 20050310
  Transmission Date: 20050727
  Serious: Yes (Other)
  Sender: FDA-Public Use
  Company Number: 2005039663

PATIENT
  Age: 42 Year
  Sex: Male
  Weight: 77.1115 kg

DRUGS (3)
  1. CELEBREX [Suspect]
     Indication: INFLAMMATION
     Dosage: (200 MG, UNKNOWN) ORAL
     Route: 048
     Dates: end: 20021001
  2. AMITRIPTYLINE HCL [Suspect]
     Indication: PROSTATITIS
     Dosage: UNKNOWN
     Route: 065
     Dates: start: 20020906
  3. LEVOFLOXACIN [Suspect]
     Indication: PROSTATITIS
     Dosage: ORAL
     Route: 048
     Dates: start: 20020906

REACTIONS (22)
  - ALANINE AMINOTRANSFERASE INCREASED [None]
  - ARTHRALGIA [None]
  - ASTHENIA [None]
  - BACK PAIN [None]
  - BLOOD KETONE BODY INCREASED [None]
  - BLOOD URINE PRESENT [None]
  - DRUG INTERACTION [None]
  - HEPATIC CYST [None]
  - HEPATIC ENZYME INCREASED [None]
  - HEPATIC LESION [None]
  - HEPATIC PAIN [None]
  - INFLUENZA LIKE ILLNESS [None]
  - INSOMNIA [None]
  - LIVER DISORDER [None]
  - MEMORY IMPAIRMENT [None]
  - NASOPHARYNGITIS [None]
  - PELVIC PAIN [None]
  - PROSTATITIS [None]
  - PSYCHOTIC DISORDER [None]
  - RENAL PAIN [None]
  - SUICIDE ATTEMPT [None]
  - TREMOR [None]
